FAERS Safety Report 8992370 (Version 2)
Quarter: 2013Q1

REPORT INFORMATION
  Report Type: Spontaneous
  Country: US (occurrence: US)
  Receive Date: 20121231
  Receipt Date: 20130212
  Transmission Date: 20140127
  Serious: Yes (Hospitalization, Other)
  Sender: FDA-Public Use
  Company Number: US-JNJFOC-20121210173

PATIENT
  Age: 77 Year
  Sex: Female
  Weight: 113 kg

DRUGS (22)
  1. XARELTO [Suspect]
     Indication: HIP ARTHROPLASTY
     Route: 048
     Dates: start: 20121211, end: 20121216
  2. XARELTO [Suspect]
     Indication: PULMONARY EMBOLISM
     Route: 048
     Dates: start: 20121211, end: 20121216
  3. WARFARIN [Suspect]
     Indication: PROPHYLAXIS
     Route: 048
     Dates: start: 20121212, end: 20121212
  4. WARFARIN [Suspect]
     Indication: PROPHYLAXIS
     Route: 048
     Dates: start: 20121204
  5. ASPIRIN [Concomitant]
     Route: 048
     Dates: start: 20121211, end: 20121216
  6. OXYCODONE [Concomitant]
     Route: 048
     Dates: start: 20121211, end: 20121211
  7. ROPINIROLE [Concomitant]
     Route: 048
     Dates: start: 20121211, end: 20121216
  8. TRAMADOL [Concomitant]
     Route: 048
     Dates: start: 20121211, end: 20121216
  9. MORPHINE [Concomitant]
     Dates: start: 20121211, end: 20121216
  10. VICODIN [Concomitant]
     Dates: start: 20121211, end: 20121216
  11. ONDANSETRON [Concomitant]
     Route: 040
     Dates: start: 20121211, end: 20121216
  12. MOXIFLOXACIN [Concomitant]
     Dates: start: 20121211, end: 20121216
  13. DOCUSATE SODIUM [Concomitant]
     Route: 048
     Dates: start: 20121211, end: 20121216
  14. INSULIN GLARGINE [Concomitant]
     Route: 058
     Dates: start: 20121211, end: 20121216
  15. LOSARTAN [Concomitant]
     Route: 048
     Dates: start: 20121211, end: 20121216
  16. METOPROLOL TARTRATE [Concomitant]
     Route: 048
     Dates: start: 20121211, end: 20121216
  17. MONTELUKAST [Concomitant]
     Route: 048
     Dates: start: 20121211, end: 20121216
  18. PRAVASTATIN [Concomitant]
     Route: 048
     Dates: start: 20121211, end: 20121216
  19. ALBUTEROL [Concomitant]
     Route: 055
     Dates: start: 20121211, end: 20121216
  20. INSULIN ASPART [Concomitant]
     Dosage: 0-16 UNITS
     Route: 058
     Dates: start: 20121212, end: 20121216
  21. MAGNESIUM [Concomitant]
     Dates: start: 20121211, end: 20121216
  22. POTASSIUM [Concomitant]
     Dates: start: 20121211, end: 20121216

REACTIONS (2)
  - International normalised ratio increased [Recovered/Resolved]
  - Medication error [Unknown]
